FAERS Safety Report 11222172 (Version 1)
Quarter: 2015Q2

REPORT INFORMATION
  Report Type: Spontaneous
  Country: JP (occurrence: JP)
  Receive Date: 20150626
  Receipt Date: 20150626
  Transmission Date: 20150821
  Serious: Yes (Other)
  Sender: FDA-Public Use
  Company Number: JP-TEVA-572523ISR

PATIENT
  Age: 61 Year
  Sex: Male

DRUGS (10)
  1. MEROPEN [Concomitant]
     Active Substance: MEROPENEM
     Indication: CHOLANGITIS
     Dosage: 1 GRAM DAILY;
     Route: 042
     Dates: start: 20150116, end: 20150119
  2. MEROPEN [Concomitant]
     Active Substance: MEROPENEM
     Dosage: 1 GRAM DAILY;
     Route: 042
     Dates: start: 20150124, end: 20150126
  3. OXINORM [Concomitant]
     Active Substance: OXYCODONE HYDROCHLORIDE
     Indication: CANCER PAIN
     Route: 048
     Dates: start: 20141108
  4. MAGMITT [Concomitant]
     Active Substance: MAGNESIUM OXIDE
     Indication: CONSTIPATION
     Dosage: 1 GRAM DAILY;
     Route: 048
     Dates: start: 20141126
  5. FILGRASTIM BS INJ. NK (FILGRASTIM [GENETICAL RECOMBINATION]) [Suspect]
     Active Substance: FILGRASTIM
     Indication: NEUTROPENIA
     Dosage: DAILY DOSE: 75MCG/BODY
     Route: 058
     Dates: start: 20150108, end: 20150109
  6. ABRAXANE [Concomitant]
     Active Substance: PACLITAXEL
     Indication: ADENOCARCINOMA GASTRIC
     Dosage: 390.78 MILLIGRAM DAILY;
     Route: 042
     Dates: start: 20141225, end: 20141225
  7. OXYCONTIN [Concomitant]
     Active Substance: OXYCODONE HYDROCHLORIDE
     Indication: CANCER PAIN
     Dosage: 10 MILLIGRAM DAILY;
     Route: 048
     Dates: start: 20141126
  8. DEXART [Concomitant]
     Active Substance: DEXAMETHASONE SODIUM PHOSPHATE
     Dosage: 6.6 MILLIGRAM DAILY;
     Route: 042
     Dates: start: 20141225
  9. URSO [Concomitant]
     Active Substance: URSODIOL
     Indication: CHOLESTASIS
     Dosage: 300 MILLIGRAM DAILY;
     Route: 048
     Dates: start: 20141108, end: 20150216
  10. LYRICA [Concomitant]
     Active Substance: PREGABALIN
     Indication: NEUROPATHY PERIPHERAL
     Dosage: 150 MILLIGRAM DAILY;
     Route: 048
     Dates: start: 20150109, end: 20150120

REACTIONS (1)
  - Cholangitis [Recovering/Resolving]

NARRATIVE: CASE EVENT DATE: 20150116
